FAERS Safety Report 4684664-3 (Version None)
Quarter: 2005Q2

REPORT INFORMATION
  Report Type: 
  Country: None (occurrence: None)
  Receive Date: 20050603
  Receipt Date: 20050530
  Transmission Date: 20051028
  Serious: Yes (Other)
  Sender: FDA-Public Use
  Company Number: 200510531BVD

PATIENT

DRUGS (1)
  1. AVALOX (MOXIFLOXACIN HYDROCHLORIDE) [Suspect]

REACTIONS (1)
  - NEPHRITIS INTERSTITIAL [None]
